FAERS Safety Report 9779547 (Version 1)
Quarter: 2013Q4

REPORT INFORMATION
  Report Type: Spontaneous
  Country: US (occurrence: US)
  Receive Date: 20131223
  Receipt Date: 20131223
  Transmission Date: 20140711
  Serious: Yes (Hospitalization, Other)
  Sender: FDA-Public Use
  Company Number: US-ELI_LILLY_AND_COMPANY-US201312005624

PATIENT
  Age: 61 Year
  Sex: Male

DRUGS (3)
  1. EFFIENT [Suspect]
     Indication: STENT PLACEMENT
     Dosage: 60 MG, SINGLE
     Route: 048
     Dates: start: 20131212, end: 20131212
  2. EFFIENT [Suspect]
     Dosage: 10 MG, QD
     Route: 048
  3. INTEGRILIN [Concomitant]

REACTIONS (1)
  - Thrombosis in device [Recovering/Resolving]
